FAERS Safety Report 6786835-9 (Version None)
Quarter: 2010Q2

REPORT INFORMATION
  Report Type: 
  Country: None (occurrence: None)
  Receive Date: 20100623
  Receipt Date: 20100621
  Transmission Date: 20101027
  Serious: No
  Sender: FDA-Public Use
  Company Number: US-ROXANE LABORATORIES, INC.-2010-RO-00745RO

PATIENT
  Sex: Female

DRUGS (3)
  1. FLUTICASONE [Suspect]
     Indication: SINUSITIS
     Route: 045
     Dates: start: 20100616, end: 20100621
  2. FLUTICASONE [Suspect]
     Indication: MULTIPLE ALLERGIES
  3. NIFEDIPINE [Concomitant]
     Indication: HYPERTENSION

REACTIONS (1)
  - VISION BLURRED [None]
